FAERS Safety Report 5449059-3 (Version None)
Quarter: 2007Q3

REPORT INFORMATION
  Report Type: 
  Country: None (occurrence: None)
  Receive Date: 20070911
  Receipt Date: 20070910
  Transmission Date: 20080115
  Serious: Yes (Other)
  Sender: FDA-Public Use
  Company Number: DE-JNJFOC-20070804938

PATIENT
  Sex: Male
  Weight: 83 kg

DRUGS (2)
  1. SEMPERA [Suspect]
  2. SEMPERA [Suspect]
     Indication: DRUG USE FOR UNKNOWN INDICATION

REACTIONS (2)
  - HAEMATOMA [None]
  - HAEMORRHAGE [None]
